FAERS Safety Report 10951179 (Version 1)
Quarter: 2015Q1

REPORT INFORMATION
  Report Type: Spontaneous
  Country: US (occurrence: US)
  Receive Date: 20150324
  Receipt Date: 20150324
  Transmission Date: 20150721
  Serious: No
  Sender: FDA-Public Use
  Company Number: US-CELGENEUS-USA-2015032190

PATIENT
  Sex: Female

DRUGS (1)
  1. OTEZLA [Suspect]
     Active Substance: APREMILAST
     Indication: PSORIASIS
     Dosage: 60 MILLIGRAM
     Route: 048
     Dates: start: 20150115

REACTIONS (6)
  - Nervousness [Unknown]
  - Blood pressure increased [Unknown]
  - Nausea [Unknown]
  - Depression [Unknown]
  - Stress [Unknown]
  - Tremor [Unknown]

NARRATIVE: CASE EVENT DATE: 2015
